FAERS Safety Report 16211936 (Version 1)
Quarter: 2019Q2

REPORT INFORMATION
  Report Type: Spontaneous
  Country: US (occurrence: US)
  Receive Date: 20190314
  Receipt Date: 20190314
  Transmission Date: 20190711
  Serious: No
  Sender: FDA-Public Use
  Company Number: None

PATIENT
  Age: 41 Year
  Sex: Female
  Weight: 83.91 kg

DRUGS (1)
  1. ESTRADIOL TRANSDERMAL PATCH DAY 0.1MG/DAY [Suspect]
     Active Substance: ESTRADIOL
     Indication: HORMONE REPLACEMENT THERAPY
     Dosage: ?          OTHER DOSE:1 PATCH;?
     Route: 062

REACTIONS (2)
  - Product substitution issue [None]
  - Application site erythema [None]

NARRATIVE: CASE EVENT DATE: 20190214
